FAERS Safety Report 19305580 (Version 2)
Quarter: 2021Q2

REPORT INFORMATION
  Report Type: Spontaneous
  Country: US (occurrence: US)
  Receive Date: 20210526
  Receipt Date: 20210601
  Transmission Date: 20210717
  Serious: No
  Sender: FDA-Public Use
  Company Number: US-JNJFOC-20210534565

PATIENT
  Age: 61 Year
  Sex: Male

DRUGS (1)
  1. TREMFYA [Suspect]
     Active Substance: GUSELKUMAB
     Indication: RHEUMATOID ARTHRITIS
     Route: 058
     Dates: start: 2021

REACTIONS (5)
  - Drug delivery system malfunction [Unknown]
  - Accidental exposure to product [Unknown]
  - Product use in unapproved indication [Unknown]
  - Off label use [Unknown]
  - Product dose omission issue [Unknown]

NARRATIVE: CASE EVENT DATE: 2021
